FAERS Safety Report 9233752 (Version 1)
Quarter: 2013Q1

REPORT INFORMATION
  Report Type: Spontaneous
  Country: US (occurrence: None)
  Receive Date: 20121031
  Receipt Date: 20121031
  Transmission Date: 20140127
  Serious: Yes (Other)
  Sender: FDA-Public Use
  Company Number: PHEH2012US013572

PATIENT
  Age: 49 Year
  Sex: Male

DRUGS (2)
  1. GILENYA [Suspect]
     Indication: MULTIPLE SCLEROSIS
     Route: 048
     Dates: start: 201102
  2. CORTICOSTEROIDS (NO INGREDIENTS/SUBSTANCES) [Concomitant]

REACTIONS (2)
  - Ophthalmic herpes zoster [None]
  - Pain [None]
